FAERS Safety Report 6136992-2 (Version None)
Quarter: 2009Q1

REPORT INFORMATION
  Report Type: 
  Country: None (occurrence: None)
  Receive Date: 20090326
  Receipt Date: 20090326
  Transmission Date: 20090719
  Serious: Yes (Death, Hospitalization, Other)
  Sender: FDA-Public Use
  Company Number: None

PATIENT
  Age: 58 Year
  Sex: Male

DRUGS (6)
  1. PROGRAF [Suspect]
     Indication: IMMUNOSUPPRESSION
     Dosage: UNK, UNKNOWN/D, UNKNOWN
     Route: 065
  2. PREDNISOLONE [Concomitant]
  3. MYCOPHENOLATE MOFETIL [Concomitant]
  4. ACYCLOVIR [Concomitant]
  5. FLUCONAZOLE [Concomitant]
  6. TRIMETHOPRIM + SULFAMETHOXAZOLE [Concomitant]

REACTIONS (8)
  - ABSCESS SOFT TISSUE [None]
  - ACINETOBACTER INFECTION [None]
  - ASPERGILLOSIS [None]
  - BRAIN ABSCESS [None]
  - CYTOMEGALOVIRUS INFECTION [None]
  - DIABETES MELLITUS [None]
  - DIALYSIS [None]
  - TRANSPLANT REJECTION [None]
